FAERS Safety Report 5274347-3 (Version None)
Quarter: 2007Q1

REPORT INFORMATION
  Report Type: 
  Country: None (occurrence: None)
  Receive Date: 20070323
  Receipt Date: 20070313
  Transmission Date: 20070707
  Serious: Yes (Other)
  Sender: FDA-Public Use
  Company Number: US-PFIZER INC-2006043552

PATIENT
  Sex: Female
  Weight: 64.4 kg

DRUGS (15)
  1. VFEND [Interacting]
     Indication: CANDIDIASIS
     Route: 065
  2. VFEND [Interacting]
     Route: 065
  3. FLAGYL [Suspect]
     Indication: PROPHYLAXIS
     Route: 065
  4. AMBIEN [Interacting]
     Indication: INSOMNIA
     Dosage: TEXT:UNKNOWN
     Route: 065
     Dates: start: 20060101, end: 20060227
  5. GABITRIL [Interacting]
     Indication: INSOMNIA
     Route: 065
  6. PEN-VEE K [Interacting]
     Indication: ILL-DEFINED DISORDER
     Route: 048
  7. PEN-VEE K [Interacting]
     Route: 048
  8. VANCOMYCIN [Suspect]
     Indication: ILL-DEFINED DISORDER
     Route: 048
  9. MOTRIN [Suspect]
     Indication: PAIN
     Dosage: DAILY DOSE:1200MG
     Route: 065
  10. PROVIGIL [Concomitant]
     Route: 065
  11. NORTRIPTYLINE HCL [Concomitant]
     Route: 065
  12. DROSPIRENONE + ETHINYL ESTRADIOL [Concomitant]
     Route: 065
  13. TPN [Concomitant]
     Route: 065
  14. ACIDOPHILUS [Concomitant]
     Route: 065
  15. YASMIN [Concomitant]
     Route: 065

REACTIONS (38)
  - ABDOMINAL DISTENSION [None]
  - ABDOMINAL PAIN [None]
  - ABDOMINAL PAIN UPPER [None]
  - ABNORMAL FAECES [None]
  - ANORECTAL DISORDER [None]
  - BACK PAIN [None]
  - BLOOD PRESSURE INCREASED [None]
  - BODY TEMPERATURE INCREASED [None]
  - BREATH SOUNDS ABNORMAL [None]
  - CONSTIPATION [None]
  - CULTURE STOOL POSITIVE [None]
  - DEPRESSION [None]
  - DIARRHOEA [None]
  - DIZZINESS [None]
  - DRUG INEFFECTIVE [None]
  - DRUG INTERACTION [None]
  - FATIGUE [None]
  - FEELING DRUNK [None]
  - FLATULENCE [None]
  - FUNGAL INFECTION [None]
  - GALLBLADDER DISORDER [None]
  - GASTROOESOPHAGEAL REFLUX DISEASE [None]
  - GRAVITATIONAL OEDEMA [None]
  - HEART RATE INCREASED [None]
  - HYPOTHYROIDISM [None]
  - INSOMNIA [None]
  - MUSCULAR WEAKNESS [None]
  - MYALGIA [None]
  - NAUSEA [None]
  - PAIN IN EXTREMITY [None]
  - SALMONELLOSIS [None]
  - SOMNOLENCE [None]
  - STEATORRHOEA [None]
  - TONSILLITIS [None]
  - TREMOR [None]
  - VISUAL DISTURBANCE [None]
  - VOMITING [None]
  - WEIGHT DECREASED [None]
